FAERS Safety Report 13158208 (Version 2)
Quarter: 2017Q1

REPORT INFORMATION
  Report Type: Spontaneous
  Country: DE (occurrence: DE)
  Receive Date: 20170127
  Receipt Date: 20170317
  Transmission Date: 20170428
  Serious: Yes (Other)
  Sender: FDA-Public Use
  Company Number: DE-SA-2017SA012925

PATIENT
  Age: 71 Year
  Sex: Female

DRUGS (6)
  1. LANTUS [Concomitant]
     Active Substance: INSULIN GLARGINE
  2. SOLOSTAR [Concomitant]
     Active Substance: DEVICE
     Dates: start: 201608, end: 20161028
  3. NOVORAPID [Concomitant]
     Active Substance: INSULIN ASPART
  4. SOLOSTAR [Concomitant]
     Active Substance: DEVICE
     Dates: start: 20161029
  5. TOUJEO [Suspect]
     Active Substance: INSULIN GLARGINE
     Route: 058
     Dates: start: 201608, end: 20161028
  6. TOUJEO [Suspect]
     Active Substance: INSULIN GLARGINE
     Dosage: 20-0-8 IU
     Route: 058
     Dates: start: 20161029

REACTIONS (4)
  - Shock [Unknown]
  - Off label use [Unknown]
  - Blood glucose fluctuation [Not Recovered/Not Resolved]
  - Blood glucose increased [Unknown]

NARRATIVE: CASE EVENT DATE: 2016
